FAERS Safety Report 23998253 (Version 1)
Quarter: 2024Q2

REPORT INFORMATION
  Report Type: Spontaneous
  Country: NL (occurrence: NL)
  Receive Date: 20240621
  Receipt Date: 20240621
  Transmission Date: 20240716
  Serious: Yes (Other)
  Sender: FDA-Public Use
  Company Number: None

PATIENT
  Age: 49 Year
  Sex: Female
  Weight: 137 kg

DRUGS (6)
  1. AMLODIPINE [Suspect]
     Active Substance: AMLODIPINE BESYLATE
     Indication: Oesophageal stenosis
     Dosage: 1 PIECE PER DAY, BRAND NAME NOT SPECIFIED
     Route: 065
     Dates: start: 20240410, end: 20240413
  2. EUTHYROX [Concomitant]
     Active Substance: LEVOTHYROXINE SODIUM
     Indication: Product used for unknown indication
     Dosage: LEVOTHYROXINE (NATRIUM) / EUTHYROX
     Route: 065
  3. AMILORIDE HYDROCHLOROTHIAZIDE [Concomitant]
     Indication: Product used for unknown indication
     Dosage: 12.5MG, AMILORIDE/HYDROCHLOROTHIAZIDE 2.5/25MG / BRAND NAME NOT SPECIFIED
     Route: 065
  4. SERETIDE [Concomitant]
     Active Substance: FLUTICASONE PROPIONATE\SALMETEROL XINAFOATE
     Indication: Product used for unknown indication
     Dosage: SALMETEROL/FLUTICASON AEROSOL 25/250UG/DO / SERETIDE AEROSOL 25/250MCG/DO CFKVR SPBS 120DO+INH
     Route: 065
  5. VENTOLIN [Concomitant]
     Active Substance: ALBUTEROL SULFATE
     Indication: Product used for unknown indication
     Dosage: SALBUTAMOL AEROSOL 100UG/DO / VENTOLIN 100 AER CFKVR 100MCG/DO SPBS 200DO+INHAL
     Route: 065
  6. DESLORATADINE [Concomitant]
     Active Substance: DESLORATADINE
     Indication: Product used for unknown indication
     Dosage: SMELTTABLET / BRAND NAME NOT SPECIFIED
     Route: 065

REACTIONS (26)
  - Throat tightness [Recovering/Resolving]
  - Muscle spasms [Recovering/Resolving]
  - Sneezing [Recovering/Resolving]
  - Oropharyngeal pain [Recovering/Resolving]
  - Tinnitus [Recovering/Resolving]
  - Chills [Recovering/Resolving]
  - Lip injury [Not Recovered/Not Resolved]
  - Tendon discomfort [Recovering/Resolving]
  - Abdominal pain [Not Recovered/Not Resolved]
  - Rhinorrhoea [Recovering/Resolving]
  - Dizziness [Recovering/Resolving]
  - Dyspnoea [Recovering/Resolving]
  - Gingival pain [Recovering/Resolving]
  - Palpitations [Recovered/Resolved]
  - Fatigue [Not Recovered/Not Resolved]
  - Condition aggravated [Not Recovered/Not Resolved]
  - Rhinalgia [Recovering/Resolving]
  - Peripheral coldness [Recovering/Resolving]
  - Myalgia [Recovering/Resolving]
  - Headache [Recovering/Resolving]
  - Cough [Not Recovered/Not Resolved]
  - Nasopharyngitis [Recovering/Resolving]
  - Musculoskeletal pain [Recovered/Resolved]
  - Vision blurred [Not Recovered/Not Resolved]
  - Haematoma [Not Recovered/Not Resolved]
  - Chest pain [Recovering/Resolving]
